FAERS Safety Report 6505982-X (Version None)
Quarter: 2009Q4

REPORT INFORMATION
  Report Type: 
  Country: None (occurrence: None)
  Receive Date: 20091218
  Receipt Date: 20091208
  Transmission Date: 20100525
  Serious: Yes (Other)
  Sender: FDA-Public Use
  Company Number: US-PFIZER INC-2009308472

PATIENT
  Sex: Female
  Weight: 45.351 kg

DRUGS (2)
  1. LYRICA [Suspect]
     Indication: NERVE INJURY
     Dosage: 50 MG, UNK
     Dates: start: 20060601
  2. LYRICA [Suspect]
     Indication: NEURALGIA

REACTIONS (3)
  - CHAPPED LIPS [None]
  - LIP SWELLING [None]
  - SPINAL DISORDER [None]
